FAERS Safety Report 7074156-9 (Version None)
Quarter: 2010Q4

REPORT INFORMATION
  Report Type: 
  Country: None (occurrence: None)
  Receive Date: 20101029
  Receipt Date: 20101021
  Transmission Date: 20110411
  Serious: Yes (Hospitalization, Other)
  Sender: FDA-Public Use
  Company Number: DE-PFIZER INC-2010129899

PATIENT
  Age: 23 Year
  Sex: Female

DRUGS (2)
  1. ATARAX [Suspect]
     Dosage: 10 DF: 250 MG
     Route: 048
  2. ETHANOL [Suspect]
     Dosage: UNK
     Route: 048

REACTIONS (6)
  - ALCOHOL USE [None]
  - FATIGUE [None]
  - FEELING ABNORMAL [None]
  - INCORRECT DOSE ADMINISTERED [None]
  - SOMNOLENCE [None]
  - SUICIDE ATTEMPT [None]
